FAERS Safety Report 10408068 (Version 1)
Quarter: 2014Q3

REPORT INFORMATION
  Report Type: Other
  Country: CA (occurrence: CA)
  Receive Date: 20140825
  Receipt Date: 20140825
  Transmission Date: 20150326
  Serious: Yes (Other)
  Sender: FDA-Public Use
  Company Number: CA-MYLANLABS-2014M1001922

PATIENT

DRUGS (5)
  1. LIDOCAINE. [Suspect]
     Active Substance: LIDOCAINE
     Dosage: UNK
  2. EPINEPHRINE. [Suspect]
     Active Substance: EPINEPHRINE
     Dosage: UNK
  3. BUPIVACAINE [Suspect]
     Active Substance: BUPIVACAINE
     Dosage: UNK
  4. FENTANYL. [Suspect]
     Active Substance: FENTANYL
     Dosage: 50 ?G, ONCE
     Route: 042
  5. PROPOFOL. [Concomitant]
     Active Substance: PROPOFOL
     Dosage: UNK

REACTIONS (2)
  - Hypotension [Unknown]
  - Bradycardia [Unknown]
